FAERS Safety Report 23101616 (Version 4)
Quarter: 2024Q1

REPORT INFORMATION
  Report Type: Spontaneous
  Country: FR (occurrence: FR)
  Receive Date: 20231025
  Receipt Date: 20240225
  Transmission Date: 20240410
  Serious: Yes (Hospitalization, Other)
  Sender: FDA-Public Use
  Company Number: FR-MYLANLABS-2022M1086680

PATIENT
  Age: 53 Year
  Sex: Female
  Weight: 62 kg

DRUGS (20)
  1. CYPROTERONE [Suspect]
     Active Substance: CYPROTERONE
     Indication: Product used for unknown indication
     Dosage: UNK UNK, ONCE A DAY (QD (1/2 TABLET A DAY FROM SEPTEMBER 2019)
     Route: 065
  2. CYPROTERONE [Suspect]
     Active Substance: CYPROTERONE
     Dosage: 50 MILLIGRAM, ONCE A DAY((1/2 TABLET A DAY FROM SEPTEMBER 2019))
     Route: 065
  3. ABACAVIR SULFATE\LAMIVUDINE [Suspect]
     Active Substance: ABACAVIR SULFATE\LAMIVUDINE
     Indication: Product used for unknown indication
     Dosage: UNK
     Route: 065
  4. ABACAVIR\LAMIVUDINE [Suspect]
     Active Substance: ABACAVIR\LAMIVUDINE
     Indication: Product used for unknown indication
     Dosage: UNK
     Route: 065
  5. ABACAVIR\LAMIVUDINE [Suspect]
     Active Substance: ABACAVIR\LAMIVUDINE
     Indication: Product used for unknown indication
     Dosage: UNK
     Route: 065
  6. ABIRATERONE [Suspect]
     Active Substance: ABIRATERONE
     Indication: Product used for unknown indication
     Dosage: UNK
     Route: 065
  7. CYPROTERONE ACETATE [Suspect]
     Active Substance: CYPROTERONE ACETATE
     Indication: Androgenetic alopecia
     Dosage: 50 MILLIGRAM, ONCE A DAY (50 MILLIGRAM, QD (1 TABLET/D FOR 21 DAYS/28)
     Route: 065
     Dates: start: 20020717
  8. CYPROTERONE ACETATE [Suspect]
     Active Substance: CYPROTERONE ACETATE
     Dosage: 1 DOSAGE FORM, ONCE A DAY
     Route: 048
     Dates: start: 20020717, end: 2020
  9. CYPROTERONE ACETATE [Suspect]
     Active Substance: CYPROTERONE ACETATE
     Dosage: ANDROCUR WAS REDUCE TO 1/2
     Route: 065
     Dates: start: 20190924
  10. CYPROTERONE ACETATE [Suspect]
     Active Substance: CYPROTERONE ACETATE
     Indication: Product used for unknown indication
     Dosage: 1 DOSAGE FORM, ONCE A DAY((1 TABLET/D FOR 21 DAYS/28) (PRESCRIBED ON 11-JAN-2006))
     Route: 065
     Dates: start: 20060111, end: 20160625
  11. CYPROTERONE ACETATE [Suspect]
     Active Substance: CYPROTERONE ACETATE
     Indication: Product used for unknown indication
     Dosage: 50 MILLIGRAM, ONCE A DAY(50 MILLIGRAM, QD (1 TABLET/D FOR 21 DAYS/28, PRESCRIBED ON 28-JAN-2010))
     Route: 065
  12. CYPROTERONE ACETATE [Suspect]
     Active Substance: CYPROTERONE ACETATE
     Dosage: UNK
     Route: 065
     Dates: start: 20070816, end: 20190904
  13. CYPROTERONE ACETATE [Suspect]
     Active Substance: CYPROTERONE ACETATE
     Indication: Product used for unknown indication
     Dosage: 50 MILLIGRAM, QD (1 TABLET/D FOR 21 DAYS/28, PRESCRIBED ON 28-MAR-2019)
     Route: 065
  14. CYPROTERONE ACETATE [Suspect]
     Active Substance: CYPROTERONE ACETATE
     Dosage: UNK
     Route: 065
     Dates: start: 20190401
  15. CYPROTERONE [Suspect]
     Active Substance: CYPROTERONE
     Indication: Product used for unknown indication
     Dosage: 50 MILLIGRAM, ONCE A DAY (1 TABLET/D FOR 21 DAYS/28, PRESCRIBED ON 07-JAN-2016)
     Route: 065
  16. CYPROTERONE [Suspect]
     Active Substance: CYPROTERONE
     Dosage: UNK UNK, QD (1/2 TABLET A DAY) FROM SEPTEMBER 2019)
     Route: 065
  17. CYPROTERONE [Suspect]
     Active Substance: CYPROTERONE
     Dosage: UNK
     Route: 065
     Dates: start: 20161119, end: 20191009
  18. FENOFIBRATE [Concomitant]
     Active Substance: FENOFIBRATE
     Indication: Product used for unknown indication
     Dosage: UNK UNK, ONCE A DAY
     Route: 048
  19. METFORMIN HYDROCHLORIDE [Concomitant]
     Active Substance: METFORMIN HYDROCHLORIDE
     Indication: Product used for unknown indication
     Dosage: UNK, ONCE A DAY
     Route: 048
  20. MESTINON [Concomitant]
     Active Substance: PYRIDOSTIGMINE BROMIDE
     Indication: Product used for unknown indication
     Dosage: UNK, ONCE A DAY (BID)
     Route: 065

REACTIONS (39)
  - Meningioma [Unknown]
  - Alopecia [Not Recovered/Not Resolved]
  - Emotional disorder [Unknown]
  - Spinal pain [Unknown]
  - Anosmia [Unknown]
  - Lacrimation increased [Unknown]
  - Vision blurred [Unknown]
  - Fatigue [Unknown]
  - Insomnia [Unknown]
  - Pain [Unknown]
  - Headache [Unknown]
  - Decreased appetite [Unknown]
  - Mixed anxiety and depressive disorder [Unknown]
  - Nausea [Unknown]
  - Memory impairment [Unknown]
  - Cognitive disorder [Unknown]
  - Oedema [Unknown]
  - Intermenstrual bleeding [Unknown]
  - Tendon calcification [Unknown]
  - Musculoskeletal pain [Recovered/Resolved]
  - Arthralgia [Unknown]
  - Weight decreased [Unknown]
  - Abdominal pain [Unknown]
  - Anaemia [Unknown]
  - Periorbital haematoma [Unknown]
  - Stress [Unknown]
  - Amenorrhoea [Unknown]
  - Hyposmia [Unknown]
  - Conjunctivitis [Unknown]
  - Depression [Unknown]
  - Hyperkeratosis [Unknown]
  - Hypertriglyceridaemia [Unknown]
  - Ageusia [Unknown]
  - Anhedonia [Unknown]
  - Photophobia [Unknown]
  - Vomiting [Unknown]
  - Aphasia [Recovered/Resolved]
  - Post procedural haematoma [Recovered/Resolved]
  - Off label use [Unknown]

NARRATIVE: CASE EVENT DATE: 20021001
